FAERS Safety Report 5524883-7 (Version None)
Quarter: 2007Q4

REPORT INFORMATION
  Report Type: 
  Country: None (occurrence: None)
  Receive Date: 20071119
  Receipt Date: 20071107
  Transmission Date: 20080405
  Serious: Yes (Disabling)
  Sender: FDA-Public Use
  Company Number: 2007-167110-NL

PATIENT
  Age: 46 Year
  Sex: Male

DRUGS (1)
  1. MIRTAZAPINE [Suspect]
     Indication: DEPRESSION
     Dosage: 30 MG ONCE  ORAL
     Route: 048
     Dates: start: 20070101, end: 20070101

REACTIONS (1)
  - RESTLESS LEGS SYNDROME [None]
